FAERS Safety Report 16361957 (Version 1)
Quarter: 2019Q2

REPORT INFORMATION
  Report Type: Spontaneous
  Country: GR (occurrence: GR)
  Receive Date: 20190528
  Receipt Date: 20190528
  Transmission Date: 20190711
  Serious: Yes (Other)
  Sender: FDA-Public Use
  Company Number: GR-PFIZER INC-2019216427

PATIENT
  Sex: Female

DRUGS (1)
  1. XANAX [Suspect]
     Active Substance: ALPRAZOLAM
     Dosage: 2 MG, DAILY (0.5 MG IN THE MORNING, 0.5 MG IN THE AFTERNOON, 1 MG IN THE NIGHT)
     Dates: start: 20030917

REACTIONS (4)
  - Off label use [Unknown]
  - Suicidal ideation [Unknown]
  - Incorrect product administration duration [Unknown]
  - Drug dependence [Unknown]

NARRATIVE: CASE EVENT DATE: 20030917
